FAERS Safety Report 11192833 (Version 2)
Quarter: 2015Q2

REPORT INFORMATION
  Report Type: Spontaneous
  Country: US (occurrence: US)
  Receive Date: 20150616
  Receipt Date: 20150618
  Transmission Date: 20150821
  Serious: No
  Sender: FDA-Public Use
  Company Number: US-HORIZON-RAV-0030-2015

PATIENT
  Age: 5 Month
  Sex: Female

DRUGS (5)
  1. RANITIDINE [Concomitant]
     Active Substance: RANITIDINE\RANITIDINE HYDROCHLORIDE
  2. ARGININE [Concomitant]
     Active Substance: ARGININE
  3. RAVICTI [Suspect]
     Active Substance: GLYCEROL PHENYLBUTYRATE
     Indication: ARGININOSUCCINATE SYNTHETASE DEFICIENCY
     Dosage: CHANGED TO 1 ML THREE TIMES DAILY
     Dates: start: 20150314
  4. TOPAMAX [Concomitant]
     Active Substance: TOPIRAMATE
  5. KEPPRA [Concomitant]
     Active Substance: LEVETIRACETAM

REACTIONS (2)
  - Candida infection [Unknown]
  - Wrong technique in drug usage process [Unknown]
